FAERS Safety Report 16685655 (Version 2)
Quarter: 2020Q4

REPORT INFORMATION
  Report Type: Spontaneous
  Country: US (occurrence: US)
  Receive Date: 20190809
  Receipt Date: 20201001
  Transmission Date: 20210113
  Serious: No
  Sender: FDA-Public Use
  Company Number: US-SA-2019SA213044

PATIENT

DRUGS (9)
  1. DUPIXENT [Suspect]
     Active Substance: DUPILUMAB
     Indication: DERMATITIS ATOPIC
     Dosage: 1 DF, QOW
     Route: 058
     Dates: start: 2018, end: 201906
  2. DULOXETINE. [Concomitant]
     Active Substance: DULOXETINE
  3. EUCRISA [Concomitant]
     Active Substance: CRISABOROLE
  4. CETAPHIL [CETYL ALCOHOL;PROPYLENE GLYCOL;SODIUM LAURYL SULFATE;STEARYL [Concomitant]
  5. PROAIR [FLUTICASONE PROPIONATE] [Concomitant]
     Active Substance: FLUTICASONE PROPIONATE
  6. DUPIXENT [Suspect]
     Active Substance: DUPILUMAB
     Dosage: 300 MG, QOW
     Route: 058
     Dates: end: 2020
  7. VALTREX [Concomitant]
     Active Substance: VALACYCLOVIR HYDROCHLORIDE
  8. LAMOTRIGINE. [Concomitant]
     Active Substance: LAMOTRIGINE
  9. HYDROXYZINE [Concomitant]
     Active Substance: HYDROXYZINE HYDROCHLORIDE

REACTIONS (4)
  - Suspected COVID-19 [Recovering/Resolving]
  - Ageusia [Recovering/Resolving]
  - Dermatitis atopic [Unknown]
  - Respiratory tract congestion [Recovering/Resolving]

NARRATIVE: CASE EVENT DATE: 2020
